FAERS Safety Report 11257895 (Version 1)
Quarter: 2015Q3

REPORT INFORMATION
  Report Type: Spontaneous
  Country: CA (occurrence: None)
  Receive Date: 20150708
  Receipt Date: 20150708
  Transmission Date: 20151125
  Serious: No
  Sender: FDA-Public Use
  Company Number: None

PATIENT
  Age: 23 Year
  Sex: Female
  Weight: 45.36 kg

DRUGS (1)
  1. CREST PRO-HEALTH COMPLETE (FRESH MINT) [Suspect]
     Active Substance: SODIUM FLUORIDE
     Indication: DENTAL DISORDER PROPHYLAXIS
     Route: 048
     Dates: start: 20150627, end: 20150703

REACTIONS (10)
  - Saliva discolouration [None]
  - Saliva altered [None]
  - Glossodynia [None]
  - Dysgeusia [None]
  - Tongue discolouration [None]
  - Hypoaesthesia oral [None]
  - Tongue disorder [None]
  - Tongue ulceration [None]
  - Glossitis [None]
  - Oral mucosal exfoliation [None]

NARRATIVE: CASE EVENT DATE: 20150601
